FAERS Safety Report 15770015 (Version 9)
Quarter: 2019Q1

REPORT INFORMATION
  Report Type: Report from Study
  Country: FR (occurrence: FR)
  Receive Date: 20181228
  Receipt Date: 20190326
  Transmission Date: 20190417
  Serious: Yes (Hospitalization)
  Sender: FDA-Public Use
  Company Number: FR-EISAI MEDICAL RESEARCH-EC-2018-049734

PATIENT
  Age: 77 Year
  Sex: Female
  Weight: 55 kg

DRUGS (17)
  1. ARESTAL [Concomitant]
     Active Substance: LOPERAMIDE OXIDE
     Dates: start: 20181007
  2. INEXIUM [Concomitant]
     Active Substance: ESOMEPRAZOLE
     Dates: start: 201802
  3. CETIRIZINE HYDROCHLORIDE. [Concomitant]
     Active Substance: CETIRIZINE HYDROCHLORIDE
     Dates: start: 20181007
  4. HYZAAR [Concomitant]
     Active Substance: HYDROCHLOROTHIAZIDE\LOSARTAN POTASSIUM
     Dates: start: 20181116
  5. BROMAZEPAM [Concomitant]
     Active Substance: BROMAZEPAM
     Dates: start: 20181007
  6. MK-3475 [Suspect]
     Active Substance: PEMBROLIZUMAB
     Route: 041
     Dates: start: 20190109
  7. MOVICOL [Concomitant]
     Active Substance: POLYETHYLENE GLYCOL 3350\POTASSIUM CHLORIDE\SODIUM BICARBONATE\SODIUM CHLORIDE
     Dates: start: 20181212, end: 20181228
  8. UVEDOSE [Concomitant]
     Active Substance: CHOLECALCIFEROL
     Dates: start: 20181007
  9. KARDEGIC [Concomitant]
     Active Substance: ASPIRIN DL-LYSINE
     Dates: start: 20181007
  10. MK-3475 [Suspect]
     Active Substance: PEMBROLIZUMAB
     Indication: ENDOMETRIAL CANCER
     Route: 041
     Dates: start: 20181128, end: 20181219
  11. EZETROL [Concomitant]
     Active Substance: EZETIMIBE
     Dates: start: 20181007
  12. DAFALGAN CODEINE [Concomitant]
     Active Substance: ACETAMINOPHEN\CODEINE PHOSPHATE
     Dates: start: 20181007
  13. ACETAMINOPHEN. [Concomitant]
     Active Substance: ACETAMINOPHEN
     Dates: start: 20181007
  14. CARDENSIEL [Concomitant]
     Active Substance: BISOPROLOL FUMARATE
     Dates: start: 20181212
  15. LENVATINIB [Suspect]
     Active Substance: LENVATINIB
     Indication: ENDOMETRIAL CANCER
     Route: 048
     Dates: start: 20181128, end: 20181220
  16. FLUVASTATIN SODIUM. [Concomitant]
     Active Substance: FLUVASTATIN SODIUM
     Dates: start: 20181007
  17. LENVATINIB [Suspect]
     Active Substance: LENVATINIB
     Route: 065
     Dates: start: 20190117

REACTIONS (3)
  - Acute coronary syndrome [Recovered/Resolved]
  - Haemorrhage urinary tract [Recovered/Resolved]
  - Hypertension [Recovered/Resolved]

NARRATIVE: CASE EVENT DATE: 20181218
